FAERS Safety Report 19943455 (Version 1)
Quarter: 2021Q4

REPORT INFORMATION
  Report Type: Report from Study
  Country: US (occurrence: US)
  Receive Date: 20211011
  Receipt Date: 20211011
  Transmission Date: 20220303
  Serious: Yes (Hospitalization, Other)
  Sender: FDA-Public Use
  Company Number: US-SEATTLE GENETICS-2021SGN02918

PATIENT
  Age: 67 Year
  Sex: Female

DRUGS (6)
  1. TUCATINIB [Suspect]
     Active Substance: TUCATINIB
     Indication: Product used for unknown indication
     Dosage: 150 MG
  2. TUCATINIB [Suspect]
     Active Substance: TUCATINIB
     Dosage: 50 MG
  3. XELODA [Suspect]
     Active Substance: CAPECITABINE
     Indication: Product used for unknown indication
     Dosage: UNK
  4. ATIVAN [Concomitant]
     Active Substance: LORAZEPAM
  5. DEXAMETHASONE [Concomitant]
     Active Substance: DEXAMETHASONE
  6. KEPPRA [Concomitant]
     Active Substance: LEVETIRACETAM

REACTIONS (8)
  - Fatigue [Unknown]
  - Lethargy [Unknown]
  - Brain oedema [Unknown]
  - Feeling abnormal [Unknown]
  - Feeling drunk [Unknown]
  - Muscle twitching [Unknown]
  - Lethargy [Unknown]
  - Epistaxis [Unknown]

NARRATIVE: CASE EVENT DATE: 20211005
